FAERS Safety Report 9849648 (Version 1)
Quarter: 2014Q1

REPORT INFORMATION
  Report Type: Spontaneous
  Country: US (occurrence: US)
  Receive Date: 20140128
  Receipt Date: 20140128
  Transmission Date: 20141002
  Serious: No
  Sender: FDA-Public Use
  Company Number: US-PFIZER INC-2014024124

PATIENT
  Age: 70 Year
  Sex: Female

DRUGS (3)
  1. ELIQUIS [Suspect]
     Indication: ATRIAL FIBRILLATION
     Dosage: 2.5 MG, 2X/DAY
  2. PROPANOLOL HCL [Suspect]
     Dosage: UNK
  3. METOPROLOL - SLOW RELEASE [Suspect]
     Dosage: 1 DF=100 MG, UNK

REACTIONS (1)
  - Rash pruritic [Not Recovered/Not Resolved]
